FAERS Safety Report 18338160 (Version 1)
Quarter: 2020Q4

REPORT INFORMATION
  Report Type: Spontaneous
  Country: DE (occurrence: DE)
  Receive Date: 20201002
  Receipt Date: 20201002
  Transmission Date: 20210113
  Serious: Yes (Hospitalization, Other)
  Sender: FDA-Public Use
  Company Number: DE-LUNDBECK-DKLU3021939

PATIENT
  Age: 43 Year
  Sex: Male

DRUGS (3)
  1. CHLOROQUINE PHOSPHATE. [Suspect]
     Active Substance: CHLOROQUINE PHOSPHATE
     Indication: SUICIDE ATTEMPT
     Route: 048
  2. FRISIUM [Suspect]
     Active Substance: CLOBAZAM
     Indication: SUICIDE ATTEMPT
     Dosage: 400 MG, 40 TABLETS
     Route: 048
  3. METOCLOPRAMIDE HYDROCHLORIDE. [Suspect]
     Active Substance: METOCLOPRAMIDE HYDROCHLORIDE
     Indication: SUICIDE ATTEMPT
     Route: 065

REACTIONS (7)
  - Diarrhoea [Unknown]
  - Somnolence [Unknown]
  - Electrocardiogram QRS complex prolonged [Recovering/Resolving]
  - Electrocardiogram QT prolonged [Recovering/Resolving]
  - Vomiting [Unknown]
  - Intentional overdose [Unknown]
  - Nausea [Unknown]
